FAERS Safety Report 14074906 (Version 1)
Quarter: 2017Q4

REPORT INFORMATION
  Report Type: Spontaneous
  Country: US (occurrence: US)
  Receive Date: 20171011
  Receipt Date: 20171011
  Transmission Date: 20180321
  Serious: No
  Sender: FDA-Public Use
  Company Number: US-TARO-2017TAR00648

PATIENT
  Sex: Male
  Weight: 79.37 kg

DRUGS (2)
  1. METRONIDAZOLE GEL USP, 1% [Suspect]
     Active Substance: METRONIDAZOLE
     Indication: ROSACEA
     Dosage: UNK UNK, 1X/DAY
     Route: 061
  2. METRONIDAZOLE GEL USP, 1% [Suspect]
     Active Substance: METRONIDAZOLE
     Dosage: UNK UNK, 1X/DAY
     Route: 061
     Dates: start: 20170801

REACTIONS (2)
  - Product substitution issue [Not Recovered/Not Resolved]
  - Application site pain [Not Recovered/Not Resolved]
